FAERS Safety Report 10583356 (Version 1)
Quarter: 2014Q4

REPORT INFORMATION
  Report Type: Spontaneous
  Country: GB (occurrence: GB)
  Receive Date: 20141114
  Receipt Date: 20141114
  Transmission Date: 20150529
  Serious: Yes (Other)
  Sender: FDA-Public Use
  Company Number: GB-TEVA-521137ISR

PATIENT
  Age: 61 Year
  Sex: Female
  Weight: 88.9 kg

DRUGS (7)
  1. ESOMEPRAZOLE [Concomitant]
     Active Substance: ESOMEPRAZOLE
  2. MUCODYNE [Concomitant]
     Active Substance: CARBOCYSTEINE
  3. PREGABALIN. [Concomitant]
     Active Substance: PREGABALIN
     Dosage: 75MG MORNING AND 150MG AT NIGHT.
  4. TRAMADOL [Concomitant]
     Active Substance: TRAMADOL
     Dosage: 200 MILLIGRAM DAILY; MODIFIED-RELEASE TABLET, 100MG 1 TABLET TWICE DAILY
  5. ERYTHROMYCIN. [Suspect]
     Active Substance: ERYTHROMYCIN
     Indication: EAR LOBE INFECTION
     Route: 048
     Dates: start: 20140925, end: 20141001
  6. MELOXICAM. [Concomitant]
     Active Substance: MELOXICAM
  7. TRAMADOL [Concomitant]
     Active Substance: TRAMADOL
     Dosage: MODIFIED-RELEASE TABLET, 50MG 1 TABLET TWICE DAILY

REACTIONS (7)
  - Fatigue [Recovered/Resolved]
  - Abdominal pain upper [Recovered/Resolved]
  - Diarrhoea [Recovered/Resolved]
  - Malaise [Recovered/Resolved]
  - Frequent bowel movements [Recovered/Resolved]
  - Lethargy [Recovered/Resolved]
  - Nausea [Recovered/Resolved]

NARRATIVE: CASE EVENT DATE: 201409
